FAERS Safety Report 4648847-0 (Version None)
Quarter: 2005Q2

REPORT INFORMATION
  Report Type: 
  Country: None (occurrence: None)
  Receive Date: 20050427
  Receipt Date: 20050413
  Transmission Date: 20051028
  Serious: Yes (Hospitalization)
  Sender: FDA-Public Use
  Company Number: US014419

PATIENT
  Age: 37 Year
  Sex: Female
  Weight: 49.8957 kg

DRUGS (7)
  1. ACTIQ [Suspect]
     Indication: BACK PAIN
     Dosage: 800 UG TID BUCCAL
     Route: 002
     Dates: start: 20030901, end: 20040831
  2. ACTIQ [Suspect]
     Indication: BACK PAIN
     Dosage: 1200 UG TID BUCCAL
     Route: 002
     Dates: start: 20030901, end: 20040831
  3. DURAGESIC-100 [Concomitant]
  4. NEXIUM [Concomitant]
  5. AMBIEN [Concomitant]
  6. ZANAFLEX [Concomitant]
  7. TRAZODONE [Concomitant]

REACTIONS (5)
  - ABDOMINAL PAIN UPPER [None]
  - FREQUENT BOWEL MOVEMENTS [None]
  - ILEUS [None]
  - VOMITING [None]
  - WEIGHT DECREASED [None]
